FAERS Safety Report 25035865 (Version 2)
Quarter: 2025Q1

REPORT INFORMATION
  Report Type: Spontaneous
  Country: CA (occurrence: CA)
  Receive Date: 20250304
  Receipt Date: 20250311
  Transmission Date: 20250409
  Serious: Yes (Hospitalization, Other)
  Sender: ACCORD
  Company Number: None

PATIENT
  Age: 26 Year
  Sex: Male

DRUGS (6)
  1. METHOTREXATE SODIUM [Suspect]
     Active Substance: METHOTREXATE SODIUM
     Indication: Crohn^s disease
     Route: 065
  2. LEMBOREXANT [Concomitant]
     Active Substance: LEMBOREXANT
     Route: 065
  3. FOLIC ACID [Concomitant]
     Active Substance: FOLIC ACID
  4. REMICADE [Concomitant]
     Active Substance: INFLIXIMAB
     Route: 042
  5. STRATTERA [Concomitant]
     Active Substance: ATOMOXETINE HYDROCHLORIDE
  6. REMICADE [Suspect]
     Active Substance: INFLIXIMAB
     Indication: Crohn^s disease

REACTIONS (4)
  - Intestinal obstruction [Recovered/Resolved]
  - Anal abscess [Recovered/Resolved]
  - Crohn^s disease [Recovered/Resolved]
  - Off label use [Recovered/Resolved]
